FAERS Safety Report 6166907-2 (Version None)
Quarter: 2009Q2

REPORT INFORMATION
  Report Type: 
  Country: None (occurrence: None)
  Receive Date: 20090424
  Receipt Date: 20090424
  Transmission Date: 20091009
  Serious: Yes (Life-Threatening, Hospitalization)
  Sender: FDA-Public Use
  Company Number: B0571432A

PATIENT
  Age: 88 Year
  Sex: Male

DRUGS (6)
  1. CEFUROXIME [Suspect]
     Indication: INFECTION
     Route: 042
     Dates: start: 20090322, end: 20090323
  2. ENOXAPARIN SODIUM [Concomitant]
  3. BETAHISTINE DIHYDROCHLORIDE [Concomitant]
  4. SIMVASTATIN [Concomitant]
  5. OMEPRAZOLE [Concomitant]
  6. ASPIRIN [Concomitant]

REACTIONS (3)
  - ANAPHYLACTIC REACTION [None]
  - NEUTROPHIL COUNT INCREASED [None]
  - WHITE BLOOD CELL COUNT INCREASED [None]
